FAERS Safety Report 10367487 (Version 2)
Quarter: 2014Q3

REPORT INFORMATION
  Report Type: Spontaneous
  Country: DE (occurrence: None)
  Receive Date: 20140805
  Receipt Date: 20140814
  Transmission Date: 20150326
  Serious: Yes (Other)
  Sender: FDA-Public Use
  Company Number: AUR-APL-2014-08297

PATIENT
  Age: 21 Year
  Sex: Female

DRUGS (3)
  1. DIMETINDENE MALEATE [Concomitant]
     Active Substance: DIMETHINDENE MALEATE
     Indication: GENERAL ANAESTHESIA
     Dosage: UNKNOWN
  2. CETIRIZINE [Suspect]
     Active Substance: CETIRIZINE HYDROCHLORIDE
     Indication: PRODUCT USED FOR UNKNOWN INDICATION
     Dosage: UNKNOWN
  3. CIMETIDINE. [Suspect]
     Active Substance: CIMETIDINE
     Indication: GENERAL ANAESTHESIA

REACTIONS (3)
  - Condition aggravated [None]
  - Hypersensitivity [None]
  - Urticaria [None]
